FAERS Safety Report 7725781-0 (Version None)
Quarter: 2011Q3

REPORT INFORMATION
  Report Type: 
  Country: None (occurrence: None)
  Receive Date: 20110902
  Receipt Date: 20110830
  Transmission Date: 20111222
  Serious: Yes (Other)
  Sender: FDA-Public Use
  Company Number: US-BRISTOL-MYERS SQUIBB COMPANY-16017238

PATIENT
  Sex: Female

DRUGS (1)
  1. ETOPOPHOS PRESERVATIVE FREE [Suspect]

REACTIONS (1)
  - DEVICE MALFUNCTION [None]
